FAERS Safety Report 11499814 (Version 2)
Quarter: 2015Q3

REPORT INFORMATION
  Report Type: Spontaneous
  Country: IT (occurrence: IT)
  Receive Date: 20150914
  Receipt Date: 20150918
  Transmission Date: 20151125
  Serious: Yes (Hospitalization)
  Sender: FDA-Public Use
  Company Number: IT-ROCHE-1632800

PATIENT
  Age: 76 Year
  Sex: Male
  Weight: 75 kg

DRUGS (9)
  1. DEXAMETHASONE. [Concomitant]
     Active Substance: DEXAMETHASONE
     Indication: PREMEDICATION
     Dosage: 4 MG/ML SOLUTION FOR INJECTION^
     Route: 042
     Dates: start: 20150728, end: 20150728
  2. GRANISETRON [Concomitant]
     Active Substance: GRANISETRON
     Indication: PREMEDICATION
     Dosage: 1MG/ML CONCENTRATE FOR SOLUTION
     Route: 042
     Dates: start: 20150728, end: 20150728
  3. CAPECITABINE. [Concomitant]
     Active Substance: CAPECITABINE
     Indication: COLON NEOPLASM
     Dosage: 500 MG - FILM-COATED TABLETS
     Route: 048
     Dates: start: 20150728, end: 20150811
  4. BIVIS [Concomitant]
     Active Substance: AMLODIPINE BESYLATE\OLMESARTAN MEDOXOMIL
     Indication: HYPERTENSION
     Dosage: 20 MG / 5 MG FILMCOATED TABLETS^
     Route: 048
  5. OMNIC [Concomitant]
     Active Substance: TAMSULOSIN HYDROCHLORIDE
     Indication: BENIGN PROSTATIC HYPERPLASIA
     Dosage: 0.4 MG MODIFIEDRELEASE HARD CAPSULES
     Route: 048
  6. OXALIPLATIN. [Concomitant]
     Active Substance: OXALIPLATIN
     Indication: COLON NEOPLASM
     Dosage: 5MG/ML POWDER FOR SOLUTION FOR INFUSION
     Route: 042
     Dates: start: 20150728, end: 20150728
  7. PANTORC [Concomitant]
     Active Substance: PANTOPRAZOLE SODIUM
     Indication: PREMEDICATION
     Dosage: 1BOTTLE LYOPHILISED, FOR IV ADMINISTRATION
     Route: 042
     Dates: start: 20150728, end: 20150728
  8. AVODART [Concomitant]
     Active Substance: DUTASTERIDE
     Indication: BENIGN PROSTATIC HYPERPLASIA
     Dosage: 0.5 MG SOFT CAPSULES
     Route: 048
  9. AVASTIN [Suspect]
     Active Substance: BEVACIZUMAB
     Indication: COLON NEOPLASM
     Dosage: 1 X 400 MG VIAL OF CONCENTRATE FOR SOLUTION
     Route: 042
     Dates: start: 20150728, end: 20150728

REACTIONS (2)
  - Transient ischaemic attack [Recovered/Resolved]
  - Carotid artery stenosis [Recovered/Resolved]

NARRATIVE: CASE EVENT DATE: 20150811
